FAERS Safety Report 14531405 (Version 1)
Quarter: 2018Q1

REPORT INFORMATION
  Report Type: Spontaneous
  Country: US (occurrence: US)
  Receive Date: 20180214
  Receipt Date: 20180214
  Transmission Date: 20180509
  Serious: Yes (Hospitalization)
  Sender: FDA-Public Use
  Company Number: US-NAPPMUNDI-USA-2018-0142707

PATIENT
  Age: 36 Year
  Sex: Female

DRUGS (4)
  1. LYRICA [Interacting]
     Active Substance: PREGABALIN
     Indication: GUILLAIN-BARRE SYNDROME
     Dosage: 150 MG, Q12H
     Route: 048
  2. LYRICA [Interacting]
     Active Substance: PREGABALIN
     Dosage: 300 MG, Q12H
     Route: 048
     Dates: start: 201711
  3. OXYCODONE HYDROCHLORIDE (SIMILAR TO NDA 22-272) [Suspect]
     Active Substance: OXYCODONE HYDROCHLORIDE
     Indication: NEURALGIA
     Dosage: 15 MG, UNK
     Route: 048
  4. OXYCODONE HYDROCHLORIDE (SIMILAR TO NDA 22-272) [Interacting]
     Active Substance: OXYCODONE HYDROCHLORIDE
     Indication: MYALGIA

REACTIONS (3)
  - Hallucination [Recovered/Resolved]
  - Drug interaction [Recovered/Resolved]
  - Paranoia [Recovered/Resolved]

NARRATIVE: CASE EVENT DATE: 201711
